FAERS Safety Report 15147007 (Version 2)
Quarter: 2018Q3

REPORT INFORMATION
  Report Type: Spontaneous
  Country: CN (occurrence: CN)
  Receive Date: 20180716
  Receipt Date: 20180801
  Transmission Date: 20181010
  Serious: No
  Sender: FDA-Public Use
  Company Number: CN-JNJFOC-20180706907

PATIENT
  Age: 28 Year
  Sex: Male

DRUGS (3)
  1. IMODIUM [Suspect]
     Active Substance: LOPERAMIDE HYDROCHLORIDE
     Route: 065
  2. SMECTA [Concomitant]
     Active Substance: MONTMORILLONITE
     Route: 065
  3. IMODIUM [Suspect]
     Active Substance: LOPERAMIDE HYDROCHLORIDE
     Indication: DIARRHOEA
     Dosage: ONE AT 3 PM AND OTHER AT 10 PM
     Route: 065
     Dates: start: 20180704, end: 201807

REACTIONS (1)
  - Dyschezia [Recovered/Resolved]

NARRATIVE: CASE EVENT DATE: 201807
